FAERS Safety Report 6925636-5 (Version None)
Quarter: 2010Q3

REPORT INFORMATION
  Report Type: 
  Country: None (occurrence: None)
  Receive Date: 20100816
  Receipt Date: 20100803
  Transmission Date: 20110219
  Serious: Yes (Other)
  Sender: FDA-Public Use
  Company Number: US-CELGENEUS-163-20785-10080012

PATIENT
  Sex: Female

DRUGS (1)
  1. THALOMID [Suspect]
     Indication: MULTIPLE MYELOMA
     Route: 048
     Dates: start: 20100723, end: 20100804

REACTIONS (8)
  - CONSTIPATION [None]
  - DIZZINESS [None]
  - HEADACHE [None]
  - MALAISE [None]
  - PAIN [None]
  - PARAESTHESIA [None]
  - PARALYSIS [None]
  - TOOTH DISCOLOURATION [None]
